FAERS Safety Report 5159246-X (Version None)
Quarter: 2006Q4

REPORT INFORMATION
  Report Type: 
  Country: None (occurrence: None)
  Receive Date: 20061120
  Receipt Date: 20061102
  Transmission Date: 20070319
  Serious: Yes (Hospitalization, Other)
  Sender: FDA-Public Use
  Company Number: 226482

PATIENT
  Age: 66 Year
  Sex: Male

DRUGS (5)
  1. AVASTIN [Suspect]
     Indication: COLON CANCER METASTATIC
     Dosage: 300 MG, INTRAVENOUS
     Route: 042
     Dates: start: 20060208, end: 20060515
  2. ERLOTINIB(ERLOTINIB) [Suspect]
     Indication: COLON CANCER METASTATIC
     Dosage: ORAL
     Route: 048
     Dates: start: 20060301
  3. GEMCITABINE [Concomitant]
  4. CETUXIMAB (CETUXIMAB) [Concomitant]
  5. XELODA [Concomitant]

REACTIONS (9)
  - BARRETT'S OESOPHAGUS [None]
  - CARCINOEMBRYONIC ANTIGEN INCREASED [None]
  - GASTRIC ULCER [None]
  - GASTRITIS HAEMORRHAGIC [None]
  - MALIGNANT NEOPLASM PROGRESSION [None]
  - OESOPHAGITIS HAEMORRHAGIC [None]
  - OESOPHAGITIS ULCERATIVE [None]
  - THERAPY NON-RESPONDER [None]
  - THROMBOSIS [None]
